FAERS Safety Report 4767670-X (Version None)
Quarter: 2005Q3

REPORT INFORMATION
  Report Type: 
  Country: None (occurrence: None)
  Receive Date: 20050912
  Receipt Date: 20050831
  Transmission Date: 20060218
  Serious: Yes (Other)
  Sender: FDA-Public Use
  Company Number: 2005103092

PATIENT
  Age: 16 Year
  Sex: Female

DRUGS (2)
  1. ZITHROMAX [Suspect]
     Indication: CHLAMYDIAL INFECTION
     Dosage: 2 TABLETS (500 MG, ONE-DAY TREATMENT), ORAL
     Route: 048
     Dates: start: 20050714, end: 20050714
  2. CONTRACEPTIVE (CONTRACEPTIVE) [Concomitant]

REACTIONS (8)
  - CHEST PAIN [None]
  - DELIRIUM [None]
  - DEPERSONALISATION [None]
  - EYE DISORDER [None]
  - HALLUCINATION, VISUAL [None]
  - NERVOUS SYSTEM DISORDER [None]
  - PSYCHOTIC DISORDER [None]
  - SYNCOPE [None]
